FAERS Safety Report 7933334-4 (Version None)
Quarter: 2011Q4

REPORT INFORMATION
  Report Type: 
  Country: None (occurrence: None)
  Receive Date: 20111118
  Receipt Date: 20111111
  Transmission Date: 20120403
  Serious: Yes (Life-Threatening, Hospitalization)
  Sender: FDA-Public Use
  Company Number: 2011SP025834

PATIENT
  Age: 36 Year
  Sex: Female

DRUGS (3)
  1. ZYRTEC [Concomitant]
  2. NUVARING [Suspect]
     Indication: CONTRACEPTION
     Dosage: VAG
     Route: 067
     Dates: start: 20100720, end: 20110519
  3. NASONEX [Concomitant]

REACTIONS (39)
  - PERITONEAL HAEMORRHAGE [None]
  - BRAIN NATRIURETIC PEPTIDE INCREASED [None]
  - INTRA-ABDOMINAL HAEMORRHAGE [None]
  - LEFT VENTRICULAR HYPERTROPHY [None]
  - GASTROINTESTINAL OEDEMA [None]
  - TROPONIN INCREASED [None]
  - MESENTERIC HAEMATOMA [None]
  - INFECTIOUS PERITONITIS [None]
  - ASCITES [None]
  - SMALL INTESTINAL OBSTRUCTION [None]
  - ANTIBIOTIC RESISTANT STAPHYLOCOCCUS TEST POSITIVE [None]
  - TOXIC SHOCK SYNDROME [None]
  - CARDIOMYOPATHY [None]
  - CORONARY ARTERY EMBOLISM [None]
  - HAEMORRHAGIC ANAEMIA [None]
  - SEPTIC SHOCK [None]
  - GENERALISED OEDEMA [None]
  - INTRA-ABDOMINAL HAEMATOMA [None]
  - FLUID RETENTION [None]
  - OVARIAN HAEMORRHAGE [None]
  - STREPTOCOCCAL SEPSIS [None]
  - HEPATIC FIBROSIS [None]
  - ATELECTASIS [None]
  - POST PROCEDURAL MYOCARDIAL INFARCTION [None]
  - BENIGN HEPATIC NEOPLASM [None]
  - SEROSITIS [None]
  - APPENDIX DISORDER [None]
  - VENTRICULAR HYPOKINESIA [None]
  - RIGHT ATRIAL DILATATION [None]
  - PLATELET COUNT INCREASED [None]
  - VASOSPASM [None]
  - OEDEMA PERIPHERAL [None]
  - HEPATITIS [None]
  - PLEURAL EFFUSION [None]
  - COLITIS [None]
  - FOCAL NODULAR HYPERPLASIA [None]
  - BLOOD IMMUNOGLOBULIN G DECREASED [None]
  - MYOCARDITIS [None]
  - LEUKOCYTOSIS [None]
